FAERS Safety Report 13682123 (Version 1)
Quarter: 2017Q2

REPORT INFORMATION
  Report Type: Spontaneous
  Country: US (occurrence: US)
  Receive Date: 20170623
  Receipt Date: 20170623
  Transmission Date: 20170830
  Serious: No
  Sender: FDA-Public Use
  Company Number: US-BAUSCH-BL-2017-010374

PATIENT
  Age: 61 Year
  Sex: Female
  Weight: 56.75 kg

DRUGS (3)
  1. CALCIUM [Concomitant]
     Active Substance: CALCIUM
     Indication: MINERAL SUPPLEMENTATION
  2. CALCIUM [Concomitant]
     Active Substance: CALCIUM
     Indication: MUSCLE SPASMS
     Route: 048
  3. JUBLIA [Suspect]
     Active Substance: EFINACONAZOLE
     Indication: FUNGAL INFECTION
     Route: 061
     Dates: start: 201611, end: 201703

REACTIONS (1)
  - Treatment noncompliance [Unknown]

NARRATIVE: CASE EVENT DATE: 201703
